FAERS Safety Report 13099324 (Version 5)
Quarter: 2022Q1

REPORT INFORMATION
  Report Type: Report from Study
  Country: US (occurrence: US)
  Receive Date: 20170109
  Receipt Date: 20220202
  Transmission Date: 20220424
  Serious: Yes (Other)
  Sender: FDA-Public Use
  Company Number: US-JAZZ-2017-US-000150

PATIENT
  Sex: Male

DRUGS (43)
  1. XYREM [Suspect]
     Active Substance: SODIUM OXYBATE
     Indication: Narcolepsy
     Dosage: 2.25 G, BID
     Route: 048
     Dates: start: 200411, end: 200412
  2. XYREM [Suspect]
     Active Substance: SODIUM OXYBATE
     Dosage: DOSE ADJUSTMENT
     Route: 048
     Dates: start: 200412, end: 201307
  3. XYREM [Suspect]
     Active Substance: SODIUM OXYBATE
     Dosage: 4.5 G, BID
     Route: 048
     Dates: start: 201307
  4. OMEPRAZOLE [Concomitant]
     Active Substance: OMEPRAZOLE
     Indication: Product used for unknown indication
     Dosage: UNK
     Dates: start: 201701
  5. CLONIDINE HYDROCHLORIDE [Concomitant]
     Active Substance: CLONIDINE HYDROCHLORIDE
     Indication: Product used for unknown indication
     Dosage: UNK
     Route: 062
     Dates: start: 201608
  6. EFFEXOR [Concomitant]
     Active Substance: VENLAFAXINE HYDROCHLORIDE
     Indication: Product used for unknown indication
     Dosage: UNK
     Dates: start: 201601, end: 201612
  7. MORNIFLUMATE [Concomitant]
     Active Substance: MORNIFLUMATE
     Indication: Product used for unknown indication
     Dosage: UNK
     Route: 048
     Dates: start: 20151006, end: 20151006
  8. VITAMIN D3 [Concomitant]
     Active Substance: CHOLECALCIFEROL
     Indication: Product used for unknown indication
     Dosage: 10,000 UNIT
     Dates: start: 201506
  9. SYNTHROID [Concomitant]
     Active Substance: LEVOTHYROXINE SODIUM
     Indication: Hypothyroidism
     Dosage: UNK
     Dates: start: 20150921, end: 20151006
  10. TOPAMAX [Concomitant]
     Active Substance: TOPIRAMATE
     Indication: Product used for unknown indication
     Dosage: UNK
     Dates: start: 20150921, end: 20151006
  11. TAMSULOSIN HYDROCHLORIDE [Concomitant]
     Active Substance: TAMSULOSIN HYDROCHLORIDE
     Indication: Product used for unknown indication
     Dosage: UNK
     Dates: start: 20150203, end: 20170105
  12. METHYLPHENIDATE [Concomitant]
     Active Substance: METHYLPHENIDATE
     Indication: Product used for unknown indication
     Dosage: UNK
     Dates: start: 201501
  13. TESTOSTERONE CYPIONATE [Concomitant]
     Active Substance: TESTOSTERONE CYPIONATE
     Indication: Product used for unknown indication
     Dosage: UNK
     Dates: start: 20130806, end: 20150127
  14. BUPIVACAINE HYDROCHLORIDE [Concomitant]
     Active Substance: BUPIVACAINE HYDROCHLORIDE
     Indication: Pain
     Dosage: UNK
     Dates: start: 20040101
  15. CYCLOBENZAPRINE [Concomitant]
     Active Substance: CYCLOBENZAPRINE
     Indication: Product used for unknown indication
     Dosage: UNK
     Dates: start: 20040101, end: 201612
  16. CYMBALTA [Concomitant]
     Active Substance: DULOXETINE HYDROCHLORIDE
     Indication: Product used for unknown indication
     Dosage: UNK
     Dates: start: 20040101, end: 201512
  17. DILAUDID [Concomitant]
     Active Substance: HYDROMORPHONE HYDROCHLORIDE
     Indication: Pain
     Dosage: UNK
     Dates: start: 20040101
  18. LAMICTAL [Concomitant]
     Active Substance: LAMOTRIGINE
     Indication: Bipolar disorder
     Dosage: UNK
     Dates: start: 20040101
  19. LASIX [Concomitant]
     Active Substance: FUROSEMIDE
     Indication: Product used for unknown indication
     Dosage: UNK
     Dates: start: 20040101
  20. LEVOXYL [Concomitant]
     Active Substance: LEVOTHYROXINE SODIUM
     Indication: Hypothyroidism
     Dosage: UNK
     Dates: start: 20040101
  21. LISINOPRIL [Concomitant]
     Active Substance: LISINOPRIL
     Indication: Product used for unknown indication
     Dosage: UNK
     Dates: start: 20040101
  22. LYRICA [Concomitant]
     Active Substance: PREGABALIN
     Indication: Restless legs syndrome
     Dosage: 200 MILLIGRAM
     Dates: start: 20040101
  23. LYRICA [Concomitant]
     Active Substance: PREGABALIN
     Dosage: UNK
  24. NEXIUM [Concomitant]
     Active Substance: ESOMEPRAZOLE MAGNESIUM
     Indication: Product used for unknown indication
     Dosage: UNK
     Dates: start: 20040101
  25. ACETAMINOPHEN\OXYCODONE HYDROCHLORIDE\OXYCODONE TEREPHTHALATE [Concomitant]
     Active Substance: ACETAMINOPHEN\OXYCODONE HYDROCHLORIDE\OXYCODONE TEREPHTHALATE
     Indication: Product used for unknown indication
     Dosage: UNK
     Dates: start: 20040101
  26. POTASSIUM CHLORIDE [Concomitant]
     Active Substance: POTASSIUM CHLORIDE
     Indication: Product used for unknown indication
     Dosage: UNK
     Dates: start: 20040101
  27. VYVANSE [Concomitant]
     Active Substance: LISDEXAMFETAMINE DIMESYLATE
     Indication: Product used for unknown indication
     Dosage: UNK
     Dates: start: 20010101, end: 20150127
  28. PROPECIA [Concomitant]
     Active Substance: FINASTERIDE
     Indication: Product used for unknown indication
     Dosage: 1 MILLIGRAM, QD
  29. PROSCAR [Concomitant]
     Active Substance: FINASTERIDE
     Indication: Product used for unknown indication
     Dosage: 5 MILLIGRAM, QD
     Route: 048
  30. DIFLUCAN [Concomitant]
     Active Substance: FLUCONAZOLE
     Indication: Vulvovaginal candidiasis
  31. ATROVENT [Concomitant]
     Active Substance: IPRATROPIUM BROMIDE
     Indication: Rhinitis allergic
  32. GLYCOLAX [Concomitant]
     Active Substance: POLYETHYLENE GLYCOL 3350
     Indication: Constipation
     Route: 048
  33. SUNOSI [Concomitant]
     Active Substance: SOLRIAMFETOL
     Indication: Narcolepsy
     Dosage: ONE TABLET DAILY
     Route: 048
     Dates: start: 20211011
  34. MOVANTIK [Concomitant]
     Active Substance: NALOXEGOL OXALATE
     Indication: Product used for unknown indication
  35. LIORESAL [Concomitant]
     Active Substance: BACLOFEN
     Indication: Product used for unknown indication
  36. COLCHICINE [Concomitant]
     Active Substance: COLCHICINE
     Indication: Product used for unknown indication
     Dosage: UNK
     Dates: start: 20170305
  37. LEXAPRO [Concomitant]
     Active Substance: ESCITALOPRAM OXALATE
     Indication: Product used for unknown indication
     Dosage: 20 MILLIGRAM
     Dates: start: 20170101
  38. BACLOFEN [Concomitant]
     Active Substance: BACLOFEN
     Indication: Product used for unknown indication
     Dosage: 20 MILLIGRAM
     Dates: start: 20200901
  39. BUPROPION HYDROCHLORIDE [Concomitant]
     Active Substance: BUPROPION HYDROCHLORIDE
     Indication: Product used for unknown indication
     Dosage: UNK
     Dates: start: 20201130
  40. FINASTERIDE [Concomitant]
     Active Substance: FINASTERIDE
     Indication: Product used for unknown indication
     Dosage: 5 MILLIGRAM
     Dates: start: 20201019
  41. IPRATROPIUM [Concomitant]
     Active Substance: IPRATROPIUM
     Indication: Product used for unknown indication
     Dosage: UNK
     Dates: start: 20200807
  42. OMEPRAZOLE [Concomitant]
     Active Substance: OMEPRAZOLE
     Indication: Product used for unknown indication
     Dosage: UNK
     Dates: start: 20200929
  43. MIRALAX [Suspect]
     Active Substance: POLYETHYLENE GLYCOL 3350
     Indication: Product used for unknown indication
     Dosage: UNK
     Dates: start: 20200609, end: 20220316

REACTIONS (5)
  - Spinocerebellar disorder [Not Recovered/Not Resolved]
  - Condition aggravated [Not Recovered/Not Resolved]
  - Nasopharyngitis [Unknown]
  - Hypertension [Not Recovered/Not Resolved]
  - Depression [Unknown]
